FAERS Safety Report 16566678 (Version 1)
Quarter: 2019Q3

REPORT INFORMATION
  Report Type: Spontaneous
  Country: AU (occurrence: AU)
  Receive Date: 20190712
  Receipt Date: 20190712
  Transmission Date: 20191004
  Serious: Yes (Hospitalization)
  Sender: FDA-Public Use
  Company Number: AU-PFIZER INC-2019250029

PATIENT
  Age: 63 Year
  Sex: Female
  Weight: 54 kg

DRUGS (4)
  1. XELJANZ [Suspect]
     Active Substance: TOFACITINIB CITRATE
     Indication: RHEUMATOID ARTHRITIS
     Dosage: 5 MG, 2X/DAY
     Dates: start: 20190215
  2. LEUCOVORINE [Concomitant]
     Active Substance: LEUCOVORIN
     Dosage: UNK
     Dates: start: 2017
  3. PREDNISOLONE. [Concomitant]
     Active Substance: PREDNISOLONE
     Dosage: UNK
     Dates: start: 2017
  4. MTX [METHOTREXATE] [Concomitant]
     Active Substance: METHOTREXATE SODIUM
     Dosage: UNK
     Dates: start: 2017

REACTIONS (3)
  - Back pain [Not Recovered/Not Resolved]
  - Fatigue [Not Recovered/Not Resolved]
  - Gout [Not Recovered/Not Resolved]

NARRATIVE: CASE EVENT DATE: 201905
